FAERS Safety Report 8672793 (Version 2)
Quarter: 2012Q4

REPORT INFORMATION
  Report Type: 
  Country: CA (occurrence: CA)
  Receive Date: 20120719
  Receipt Date: 20120910
  Transmission Date: 20130627
  Serious: Yes (Other)
  Sender: FDA-Public Use
  Company Number: CA-BAYER-2012-071674

PATIENT
  Sex: Female
  Weight: 86.17 kg

DRUGS (1)
  1. MIRENA [Suspect]
     Dosage: UNK
     Dates: start: 20120712

REACTIONS (2)
  - Chlamydial cervicitis [Recovered/Resolved]
  - Pain [Recovered/Resolved]
